FAERS Safety Report 6439038-1 (Version None)
Quarter: 2009Q4

REPORT INFORMATION
  Report Type: 
  Country: None (occurrence: None)
  Receive Date: 20091113
  Receipt Date: 20091109
  Transmission Date: 20100525
  Serious: Yes (Disabling)
  Sender: FDA-Public Use
  Company Number: US-ROCHE-668164

PATIENT
  Age: 6 Year
  Sex: Male

DRUGS (11)
  1. NAPROXEN [Suspect]
     Indication: DRUG USE FOR UNKNOWN INDICATION
     Route: 065
  2. DACLIZUMAB [Suspect]
     Dosage: ADMINISTERED AT BASELINE; FORM INFUSION
     Route: 042
  3. DACLIZUMAB [Suspect]
     Dosage: ADMINISTERED AT WEEK 2 AS INDUCTION
     Route: 042
  4. DACLIZUMAB [Suspect]
     Dosage: ADMINISTERED AT WEEK 4
     Route: 042
  5. PRED FORTE [Suspect]
     Indication: DRUG USE FOR UNKNOWN INDICATION
     Dosage: ADMINISTERED IN BOTH EYES
     Route: 065
  6. PRED FORTE [Suspect]
     Dosage: ADMINISTERED IN BOTH EYES.
     Route: 065
  7. METHOTREXATE [Suspect]
     Indication: DRUG USE FOR UNKNOWN INDICATION
     Route: 065
  8. METHOTREXATE [Suspect]
     Route: 065
  9. INFLIXIMAB [Suspect]
     Indication: DRUG USE FOR UNKNOWN INDICATION
     Route: 065
  10. METHYLPREDNISOLONE 4MG TAB [Suspect]
     Indication: DRUG USE FOR UNKNOWN INDICATION
     Route: 042
  11. PREDNISONE [Suspect]
     Indication: DRUG USE FOR UNKNOWN INDICATION
     Route: 065

REACTIONS (1)
  - JUVENILE ARTHRITIS [None]
